FAERS Safety Report 15434163 (Version 1)
Quarter: 2018Q3

REPORT INFORMATION
  Report Type: Spontaneous
  Country: JP (occurrence: JP)
  Receive Date: 20180927
  Receipt Date: 20180927
  Transmission Date: 20181010
  Serious: Yes (Other)
  Sender: FDA-Public Use
  Company Number: PHHY2018JP101549

PATIENT
  Age: 14 Month
  Sex: Male

DRUGS (5)
  1. VINCRISTINE [Suspect]
     Active Substance: VINCRISTINE
     Indication: RHABDOMYOSARCOMA
     Dosage: 2.0 MG/M2, UNK
     Route: 065
  2. CYCLOPHOSPHAMIDE. [Suspect]
     Active Substance: CYCLOPHOSPHAMIDE
     Indication: RHABDOMYOSARCOMA
     Dosage: 10 MG/KG, UNK
     Route: 065
  3. ACTINOMYCIN D [Suspect]
     Active Substance: DACTINOMYCIN
     Indication: RHABDOMYOSARCOMA
     Dosage: 0.015 MG/KG, UNK
     Route: 065
  4. ADRIAMYCIN [Suspect]
     Active Substance: DOXORUBICIN HYDROCHLORIDE
     Indication: RHABDOMYOSARCOMA
     Dosage: 30 MG/M2, UNK
     Route: 065
  5. CARBOPLATIN. [Suspect]
     Active Substance: CARBOPLATIN
     Indication: RHABDOMYOSARCOMA
     Dosage: 90 MG/M2, UNK
     Route: 065

REACTIONS (4)
  - Malignant neoplasm progression [Recovering/Resolving]
  - Rhabdomyosarcoma [Recovering/Resolving]
  - Infection [Unknown]
  - Product use in unapproved indication [Unknown]
